FAERS Safety Report 4959960-2 (Version None)
Quarter: 2006Q1

REPORT INFORMATION
  Report Type: 
  Country: None (occurrence: None)
  Receive Date: 20060331
  Receipt Date: 20060321
  Transmission Date: 20060701
  Serious: Yes (Hospitalization, Other)
  Sender: FDA-Public Use
  Company Number: US-MERCK-0603USA03425

PATIENT
  Sex: Male

DRUGS (3)
  1. INVANZ [Suspect]
     Indication: SKIN INFECTION
     Route: 042
     Dates: end: 20060319
  2. INVANZ [Suspect]
     Route: 042
  3. DEPAKOTE [Concomitant]
     Route: 065

REACTIONS (2)
  - CONVULSION [None]
  - DRUG LEVEL DECREASED [None]
